FAERS Safety Report 9370672 (Version 1)
Quarter: 2013Q2

REPORT INFORMATION
  Report Type: Spontaneous
  Country: US (occurrence: US)
  Receive Date: 20130626
  Receipt Date: 20130626
  Transmission Date: 20140414
  Serious: No
  Sender: FDA-Public Use
  Company Number: US-B.I. PHARMACEUTICALS,INC./RIDGEFIELD-2013-BI-17810BP

PATIENT
  Age: 6 Decade
  Sex: Male

DRUGS (2)
  1. JENTADUETO [Suspect]
     Dosage: STRENGTH: 2.5 MG / 1000 MG; DAILY DOSE: 5 MG / 2000 MG
     Route: 048
  2. JENTADUETO [Suspect]
     Dosage: STRENGTH: 2.5 MG / 500 MG; DAILY DOSE: 5 MG / 1000 MG
     Route: 048

REACTIONS (1)
  - Eructation [Recovered/Resolved]
